FAERS Safety Report 6668918-7 (Version None)
Quarter: 2010Q2

REPORT INFORMATION
  Report Type: 
  Country: None (occurrence: None)
  Receive Date: 20100401
  Receipt Date: 20100316
  Transmission Date: 20101027
  Serious: Yes (Death)
  Sender: FDA-Public Use
  Company Number: DSA_42856_2010

PATIENT
  Age: 54 Year
  Sex: Male

DRUGS (10)
  1. ENALAPRIL MALEATE [Suspect]
     Indication: HYPERTENSION
     Dosage: (10 MG BID), (20 MG BID)
  2. ATORVASTATIN CALCIUM [Concomitant]
  3. FELODIPINE [Concomitant]
  4. INSULIN GLARGINE [Concomitant]
  5. METFORMIN HCL [Concomitant]
  6. POTASSIUM [Concomitant]
  7. POTASSIUM [Concomitant]
  8. SODIUM NITROPRUSSIDE [Concomitant]
  9. SPIRONOLACTONE [Concomitant]
  10. TELMISARTAN [Concomitant]

REACTIONS (19)
  - ADRENAL DISORDER [None]
  - ATRIOVENTRICULAR BLOCK FIRST DEGREE [None]
  - BLOOD ALBUMIN DECREASED [None]
  - BLOOD CHLORIDE DECREASED [None]
  - BLOOD CORTICOTROPHIN ABNORMAL [None]
  - BLOOD GLUCOSE INCREASED [None]
  - BLOOD LACTATE DEHYDROGENASE INCREASED [None]
  - BLOOD POTASSIUM DECREASED [None]
  - CELLULITIS [None]
  - GLUCOSE URINE PRESENT [None]
  - HYPERTENSION [None]
  - HYPOKALAEMIA [None]
  - MENTAL STATUS CHANGES [None]
  - METABOLIC ALKALOSIS [None]
  - PLEURAL EFFUSION [None]
  - RESPIRATORY FAILURE [None]
  - SEPSIS [None]
  - SMALL CELL LUNG CANCER STAGE UNSPECIFIED [None]
  - TREATMENT NONCOMPLIANCE [None]
